FAERS Safety Report 6651142-1 (Version None)
Quarter: 2010Q1

REPORT INFORMATION
  Report Type: 
  Country: None (occurrence: None)
  Receive Date: 20100325
  Receipt Date: 20100310
  Transmission Date: 20100710
  Serious: No
  Sender: FDA-Public Use
  Company Number: US-B.I. PHARMACEUTICALS,INC./RIDGEFIELD-2010-BP-02868BP

PATIENT
  Age: 74 Year
  Sex: Male

DRUGS (7)
  1. CATAPRES-TTS-1 [Suspect]
     Indication: HYPERTENSION
     Dosage: 0.3 MG
     Route: 061
     Dates: start: 20100201
  2. MINOXIDIL [Concomitant]
     Indication: HYPERTENSION
     Dosage: 10 MG
  3. DILTIAZEM [Concomitant]
     Indication: HYPERTENSION
     Dosage: 180 MG
  4. LISINOPRIL AND HYDROCHLOROTHIAZIDE [Concomitant]
     Indication: HYPERTENSION
  5. ALLERGY PILL [Concomitant]
     Indication: HYPERSENSITIVITY
  6. FLONASE [Concomitant]
     Indication: HYPERSENSITIVITY
  7. ASPIRIN [Concomitant]
     Indication: PROPHYLAXIS

REACTIONS (3)
  - APPLICATION SITE PRURITUS [None]
  - HYPERTENSION [None]
  - RASH [None]
